FAERS Safety Report 9969731 (Version 1)
Quarter: 2014Q1

REPORT INFORMATION
  Report Type: Spontaneous
  Country: US (occurrence: None)
  Receive Date: 20140304
  Receipt Date: 20140304
  Transmission Date: 20141002
  Serious: Yes (Other)
  Sender: FDA-Public Use
  Company Number: None

PATIENT
  Age: 57 Year
  Sex: Male
  Weight: 63.5 kg

DRUGS (1)
  1. SALONPAS [Suspect]
     Indication: ARTHRALGIA
     Dosage: 2.56X1.65; APPLIED AS MEDICATED PATCH TO SKIN
     Dates: start: 20140220, end: 20140221

REACTIONS (1)
  - Rash pruritic [None]
